FAERS Safety Report 8058900-X (Version None)
Quarter: 2012Q1

REPORT INFORMATION
  Report Type: 
  Country: None (occurrence: None)
  Receive Date: 20120120
  Receipt Date: 20111007
  Transmission Date: 20120608
  Serious: Yes (Hospitalization)
  Sender: FDA-Public Use
  Company Number: US-BRISTOL-MYERS SQUIBB COMPANY-16144222

PATIENT
  Age: 58 Year
  Sex: Male

DRUGS (1)
  1. YERVOY [Suspect]
     Dosage: RECEIVED ALL FOUR DOSES,LAST DOSE WAS THE WEEK OF 26SEP2011

REACTIONS (3)
  - DIARRHOEA [None]
  - INTESTINAL PERFORATION [None]
  - HAEMATOCHEZIA [None]
